FAERS Safety Report 7359050-8 (Version None)
Quarter: 2011Q1

REPORT INFORMATION
  Report Type: 
  Country: None (occurrence: None)
  Receive Date: 20110317
  Receipt Date: 20110221
  Transmission Date: 20110831
  Serious: No
  Sender: FDA-Public Use
  Company Number: US-B.I. PHARMACEUTICALS,INC./RIDGEFIELD-2010-BP-13692BP

PATIENT
  Age: 71 Year
  Sex: Male

DRUGS (10)
  1. LISINOPRIL [Concomitant]
     Dosage: 40 MG
  2. PRADAXA [Suspect]
     Dosage: 300 MG
     Dates: start: 20101119, end: 20101129
  3. ALLOPURINOL [Concomitant]
     Dosage: 300 MG
  4. PRAVASTATIN [Concomitant]
     Dosage: 80 MG
  5. XANAX [Concomitant]
  6. GEMFIBROZIL [Concomitant]
     Dosage: 1200 MG
  7. CYMBALTA [Concomitant]
     Dosage: 60 MG
  8. ASPIRIN [Concomitant]
     Dosage: 325 MG
  9. TERAZOSIN HCL [Concomitant]
     Dosage: 50 MG
  10. CARVEDILOL [Concomitant]
     Dosage: 25 MG

REACTIONS (3)
  - FATIGUE [None]
  - MYALGIA [None]
  - PAIN [None]
